FAERS Safety Report 7520096-8 (Version None)
Quarter: 2011Q2

REPORT INFORMATION
  Report Type: 
  Country: None (occurrence: None)
  Receive Date: 20110602
  Receipt Date: 20110520
  Transmission Date: 20111010
  Serious: Yes (Disabling, Other)
  Sender: FDA-Public Use
  Company Number: US-MYLANLABS-2011S1011314

PATIENT
  Age: 2 Year

DRUGS (3)
  1. MELPHALAN HYDROCHLORIDE [Suspect]
     Indication: RETINOBLASTOMA BILATERAL
     Route: 013
  2. MELPHALAN HYDROCHLORIDE [Suspect]
     Route: 013
  3. HEPARIN [Concomitant]

REACTIONS (1)
  - VITREOUS HAEMORRHAGE [None]
